FAERS Safety Report 8708756 (Version 4)
Quarter: 2012Q4

REPORT INFORMATION
  Report Type: 
  Country: AU (occurrence: AU)
  Receive Date: 20120806
  Receipt Date: 20120907
  Transmission Date: 20130627
  Serious: Yes (Other)
  Sender: FDA-Public Use
  Company Number: AU-ASTRAZENECA-2012SE53167

PATIENT
  Sex: Female

DRUGS (2)
  1. SYMBICORT [Suspect]
     Dosage: 200/6 MCG FREQUENCY UNKNOWN
     Route: 055
  2. SYMBICORT [Suspect]
     Dosage: 200/6 MCG FREQUENCY UNKNOWN
     Route: 055

REACTIONS (2)
  - Asthma [Recovered/Resolved]
  - Circumstance or information capable of leading to medication error [Unknown]
